FAERS Safety Report 20620626 (Version 1)
Quarter: 2022Q1

REPORT INFORMATION
  Report Type: Spontaneous
  Country: PT (occurrence: PT)
  Receive Date: 20220322
  Receipt Date: 20220322
  Transmission Date: 20220423
  Serious: Yes (Other)
  Sender: FDA-Public Use
  Company Number: PT-MYLANLABS-2022M1020662

PATIENT
  Age: 34 Year
  Sex: Female

DRUGS (4)
  1. DOXORUBICIN [Suspect]
     Active Substance: DOXORUBICIN
     Indication: Hodgkin^s disease nodular sclerosis stage II
     Dosage: UNK
     Route: 065
     Dates: start: 2016, end: 2016
  2. BLEOMYCIN [Suspect]
     Active Substance: BLEOMYCIN SULFATE
     Indication: Hodgkin^s disease nodular sclerosis stage II
     Dosage: UNK
     Route: 065
     Dates: start: 2016, end: 2016
  3. VINBLASTINE [Suspect]
     Active Substance: VINBLASTINE
     Indication: Hodgkin^s disease nodular sclerosis stage II
     Dosage: UNK
     Route: 065
     Dates: start: 2016, end: 2016
  4. DACARBAZINE [Suspect]
     Active Substance: DACARBAZINE
     Indication: Hodgkin^s disease nodular sclerosis stage II
     Dosage: UNK
     Route: 065
     Dates: start: 2016, end: 2016

REACTIONS (1)
  - Pleuroparenchymal fibroelastosis [Recovering/Resolving]

NARRATIVE: CASE EVENT DATE: 20180101
